FAERS Safety Report 11145535 (Version 1)
Quarter: 2015Q2

REPORT INFORMATION
  Report Type: Spontaneous
  Country: SE (occurrence: SE)
  Receive Date: 20150526
  Receipt Date: 20150526
  Transmission Date: 20150821
  Serious: Yes (Hospitalization)
  Sender: FDA-Public Use
  Company Number: SE-TEVA-565227ISR

PATIENT
  Age: 84 Year
  Sex: Male

DRUGS (3)
  1. DIFLUNISAL. [Suspect]
     Active Substance: DIFLUNISAL
     Indication: HEREDITARY NEUROPATHIC AMYLOIDOSIS
     Dosage: 500 MILLIGRAM DAILY;
     Route: 048
     Dates: start: 20150209, end: 20150407
  2. PROSCAR [Suspect]
     Active Substance: FINASTERIDE
     Dosage: 5 MILLIGRAM DAILY;
     Route: 048
     Dates: start: 20140916
  3. ENALAPRIL [Suspect]
     Active Substance: ENALAPRIL
     Indication: BLOOD PRESSURE
     Dosage: 15 MILLIGRAM DAILY;
     Route: 048
     Dates: start: 2013

REACTIONS (3)
  - Erosive oesophagitis [Recovered/Resolved]
  - Helicobacter test positive [None]
  - Gastritis erosive [Recovered/Resolved]

NARRATIVE: CASE EVENT DATE: 20150407
